FAERS Safety Report 25755153 (Version 1)
Quarter: 2025Q3

REPORT INFORMATION
  Report Type: Report from Study
  Country: US (occurrence: US)
  Receive Date: 20250903
  Receipt Date: 20250903
  Transmission Date: 20251021
  Serious: No
  Sender: SUNOVION
  Company Number: US-SUMITOMO PHARMA SWITZERLAND GMBH-2025SPA011066

PATIENT
  Age: 72 Year
  Sex: Male

DRUGS (14)
  1. ORGOVYX [Suspect]
     Active Substance: RELUGOLIX
     Indication: Prostate cancer
     Route: 048
  2. ORGOVYX [Suspect]
     Active Substance: RELUGOLIX
     Route: 048
  3. ASPIRIN [Concomitant]
     Active Substance: ASPIRIN
  4. ATORVASTATIN [Concomitant]
     Active Substance: ATORVASTATIN
  5. VITAMINS [Concomitant]
     Active Substance: VITAMINS
  6. CLOPIDOGREL [Concomitant]
     Active Substance: CLOPIDOGREL BISULFATE
  7. FLUTICASONE [Concomitant]
     Active Substance: FLUTICASONE
  8. FOLIC ACID [Concomitant]
     Active Substance: FOLIC ACID
  9. FUROSEMIDE [Concomitant]
     Active Substance: FUROSEMIDE
  10. LOSARTAN [Concomitant]
     Active Substance: LOSARTAN
  11. MELOXICAM [Concomitant]
     Active Substance: MELOXICAM
  12. METOPROLOL [Concomitant]
     Active Substance: METOPROLOL
  13. TAMSULOSIN [Concomitant]
     Active Substance: TAMSULOSIN
  14. UROXATRAL [Concomitant]
     Active Substance: ALFUZOSIN HYDROCHLORIDE

REACTIONS (1)
  - Hot flush [Unknown]
